FAERS Safety Report 18224871 (Version 1)
Quarter: 2020Q3

REPORT INFORMATION
  Report Type: Spontaneous
  Country: US (occurrence: US)
  Receive Date: 20200902
  Receipt Date: 20200902
  Transmission Date: 20201103
  Serious: No
  Sender: FDA-Public Use
  Company Number: US-VELOXIS PHARMACEUTICALS-2020VELUS-000378

PATIENT
  Age: 54 Year
  Sex: Female

DRUGS (2)
  1. ENVARSUS XR [Suspect]
     Active Substance: TACROLIMUS
     Indication: PRODUCT USED FOR UNKNOWN INDICATION
     Dosage: 5 MILLIGRAM, QD STRENGTH 1 MG
     Route: 065
     Dates: start: 20200403
  2. ENVARSUS XR [Suspect]
     Active Substance: TACROLIMUS
     Dosage: 5 MILLIGRAM, QD STRENGTH 4 MG
     Route: 065
     Dates: start: 20200403

REACTIONS (1)
  - Dizziness [Recovered/Resolved]

NARRATIVE: CASE EVENT DATE: 20200403
